FAERS Safety Report 10699770 (Version 6)
Quarter: 2015Q2

REPORT INFORMATION
  Report Type: Report from Study
  Country: BR (occurrence: BR)
  Receive Date: 20150109
  Receipt Date: 20150528
  Transmission Date: 20150821
  Serious: Yes (Hospitalization, Other)
  Sender: FDA-Public Use
  Company Number: BR-ROCHE-1185852

PATIENT
  Age: 81 Year
  Sex: Female
  Weight: 60 kg

DRUGS (8)
  1. MABTHERA [Suspect]
     Active Substance: RITUXIMAB
     Indication: SJOGREN^S SYNDROME
     Dosage: LAST INFUSION ON 08/MAY/2014
     Route: 042
     Dates: start: 20110101
  2. MABTHERA [Suspect]
     Active Substance: RITUXIMAB
     Indication: RHEUMATOID ARTHRITIS
  3. AZATHIOPRINE. [Concomitant]
     Active Substance: AZATHIOPRINE
  4. PILOCARPINE [Concomitant]
     Active Substance: PILOCARPINE
  5. TEGRETOL [Concomitant]
     Active Substance: CARBAMAZEPINE
  6. GINKGO BILOBA [Concomitant]
     Active Substance: GINKGO
  7. VITAMIN C [Concomitant]
     Active Substance: ASCORBIC ACID
  8. CLONAZEPAM. [Concomitant]
     Active Substance: CLONAZEPAM

REACTIONS (21)
  - Pain [Not Recovered/Not Resolved]
  - Drug dose omission [Unknown]
  - Hypertension [Not Recovered/Not Resolved]
  - Renal injury [Not Recovered/Not Resolved]
  - Confusional state [Not Recovered/Not Resolved]
  - Eye pain [Not Recovered/Not Resolved]
  - Depressed mood [Not Recovered/Not Resolved]
  - Cataract [Not Recovered/Not Resolved]
  - Immunodeficiency [Not Recovered/Not Resolved]
  - Eye infection [Not Recovered/Not Resolved]
  - Dry eye [Not Recovered/Not Resolved]
  - Eye inflammation [Not Recovered/Not Resolved]
  - Lip dry [Not Recovered/Not Resolved]
  - Malaise [Not Recovered/Not Resolved]
  - Fall [Unknown]
  - Hypersensitivity [Unknown]
  - Tension [Not Recovered/Not Resolved]
  - Visual impairment [Not Recovered/Not Resolved]
  - Bone disorder [Unknown]
  - Ocular hyperaemia [Not Recovered/Not Resolved]
  - Off label use [Unknown]

NARRATIVE: CASE EVENT DATE: 201208
